FAERS Safety Report 21331109 (Version 1)
Quarter: 2022Q3

REPORT INFORMATION
  Report Type: Report from Study
  Country: EG (occurrence: None)
  Receive Date: 20220914
  Receipt Date: 20220914
  Transmission Date: 20221027
  Serious: Yes (Other)
  Sender: FDA-Public Use
  Company Number: EG-Merck Healthcare KGaA-9304590

PATIENT
  Age: 23 Year
  Sex: Female

DRUGS (2)
  1. REBIF [Suspect]
     Active Substance: INTERFERON BETA-1A
     Indication: Multiple sclerosis
     Route: 058
     Dates: start: 20220306
  2. REBIF [Suspect]
     Active Substance: INTERFERON BETA-1A
     Route: 058
     Dates: start: 2022

REACTIONS (5)
  - Complication of pregnancy [Unknown]
  - Lower limb fracture [Unknown]
  - Live birth [Recovered/Resolved]
  - Breast feeding [Unknown]
  - Maternal exposure during pregnancy [Recovered/Resolved]
